FAERS Safety Report 8601068-9 (Version None)
Quarter: 2012Q3

REPORT INFORMATION
  Report Type: 
  Country: None (occurrence: None)
  Receive Date: 20120817
  Receipt Date: 20120813
  Transmission Date: 20120928
  Serious: No
  Sender: FDA-Public Use
  Company Number: US-B.I. PHARMACEUTICALS,INC./RIDGEFIELD-2012-BP-19079BP

PATIENT
  Sex: Female

DRUGS (5)
  1. SPIRIVA [Suspect]
     Indication: PULMONARY HYPERTENSION
     Dosage: 18 MCG
     Route: 055
     Dates: start: 20120806
  2. CARVEDILOL [Concomitant]
     Indication: HYPERTENSION
     Dates: start: 20090101
  3. LOTREL [Concomitant]
     Indication: HYPERTENSION
     Dates: start: 19970101
  4. ISOSORBIDE [Concomitant]
     Indication: AORTIC ANEURYSM
     Dates: start: 20120201
  5. LASIX [Concomitant]
     Dates: start: 19970101

REACTIONS (2)
  - DYSPNOEA EXERTIONAL [None]
  - COUGH [None]
